FAERS Safety Report 4354657-4 (Version None)
Quarter: 2004Q2

REPORT INFORMATION
  Report Type: 
  Country: None (occurrence: None)
  Receive Date: 20040506
  Receipt Date: 20040506
  Transmission Date: 20050107
  Serious: Yes (Hospitalization)
  Sender: FDA-Public Use
  Company Number: None

PATIENT
  Age: 58 Year
  Sex: Male
  Weight: 93.8 kg

DRUGS (6)
  1. IRINOTECAN [Suspect]
     Indication: NEUROENDOCRINE TUMOUR
     Dosage: 136 MG X 1 DOSE IV
     Route: 042
     Dates: start: 20030917
  2. CISPLATIN [Suspect]
     Dosage: 52 MG X 1 DOSE IV
     Route: 042
     Dates: start: 20030917
  3. TENORECTIC [Concomitant]
  4. LISINOPRIL [Concomitant]
  5. SYNTHROID [Concomitant]
  6. LORTAB [Concomitant]

REACTIONS (5)
  - CONVULSION [None]
  - DISORIENTATION [None]
  - FALL [None]
  - METASTASES TO CENTRAL NERVOUS SYSTEM [None]
  - VISION BLURRED [None]
